FAERS Safety Report 6121514-2 (Version None)
Quarter: 2009Q1

REPORT INFORMATION
  Report Type: 
  Country: None (occurrence: None)
  Receive Date: 20090317
  Receipt Date: 20081205
  Transmission Date: 20090719
  Serious: Yes (Other)
  Sender: FDA-Public Use
  Company Number: JP-ABBOTT-09P-087-0562566-00

PATIENT
  Age: 35 Year
  Sex: Female
  Weight: 46 kg

DRUGS (12)
  1. CLARITHROMYCIN [Suspect]
     Indication: ACUTE SINUSITIS
     Route: 048
     Dates: start: 20081120, end: 20081121
  2. GENINAX TAB [Suspect]
     Indication: ACUTE SINUSITIS
     Route: 048
     Dates: start: 20081107, end: 20081112
  3. AMOXICILLIN AND CLAVULANATE POTASSIUM [Suspect]
     Indication: ACUTE SINUSITIS
     Route: 048
     Dates: start: 20081114, end: 20081119
  4. LYSOZYME HYDROCHLORIDE [Concomitant]
     Indication: DRUG USE FOR UNKNOWN INDICATION
     Route: 048
     Dates: start: 20081107, end: 20081119
  5. LYSOZYME HYDROCHLORIDE [Concomitant]
     Route: 048
     Dates: start: 20081120, end: 20081121
  6. AMBROXOL HYDROCHLORIDE [Concomitant]
     Indication: DRUG USE FOR UNKNOWN INDICATION
     Route: 048
     Dates: start: 20081107, end: 20081119
  7. AMBROXOL HYDROCHLORIDE [Concomitant]
     Route: 048
     Dates: start: 20081120, end: 20081121
  8. TROXIPIDE [Concomitant]
     Indication: DRUG USE FOR UNKNOWN INDICATION
     Route: 048
     Dates: start: 20081107, end: 20081119
  9. TROXIPIDE [Concomitant]
     Route: 048
     Dates: start: 20081120, end: 20081121
  10. LEBENIN GRA [Concomitant]
     Indication: DRUG USE FOR UNKNOWN INDICATION
     Route: 048
     Dates: start: 20081107, end: 20081112
  11. LEBENIN GRA [Concomitant]
     Route: 048
     Dates: start: 20081114, end: 20081119
  12. TRANEXAMIC ACID [Concomitant]
     Indication: DRUG USE FOR UNKNOWN INDICATION
     Route: 048
     Dates: start: 20081107, end: 20081120

REACTIONS (3)
  - PYREXIA [None]
  - RHABDOMYOLYSIS [None]
  - WHITE BLOOD CELL COUNT DECREASED [None]
